FAERS Safety Report 4899981-1 (Version None)
Quarter: 2006Q1

REPORT INFORMATION
  Report Type: 
  Country: None (occurrence: None)
  Receive Date: 20060201
  Receipt Date: 20060119
  Transmission Date: 20060701
  Serious: Yes (Death)
  Sender: FDA-Public Use
  Company Number: US200511001090

PATIENT
  Age: 71 Year
  Sex: Female

DRUGS (10)
  1. ALIMTA [Suspect]
     Indication: NON-SMALL CELL LUNG CANCER
     Dates: start: 20051026, end: 20051109
  2. FOLIC ACID [Concomitant]
  3. VITAMIN B12 [Concomitant]
  4. DECADRON [Concomitant]
  5. LISINOPRIL [Concomitant]
  6. ATIVAN [Concomitant]
  7. PROTONIX [Concomitant]
  8. SINGULAIR [Concomitant]
  9. TORSEMIDE [Concomitant]
  10. QVAR/UNK/(BECLOMETASONE DIPROPIONATE) [Concomitant]

REACTIONS (2)
  - CEREBRAL THROMBOSIS [None]
  - CEREBROVASCULAR ACCIDENT [None]
